FAERS Safety Report 25006247 (Version 1)
Quarter: 2025Q1

REPORT INFORMATION
  Report Type: Spontaneous
  Country: US (occurrence: US)
  Receive Date: 20250224
  Receipt Date: 20250224
  Transmission Date: 20250409
  Serious: No
  Sender: TEVA
  Company Number: US-TEVA-VS-3295154

PATIENT
  Age: 83 Year
  Sex: Female

DRUGS (1)
  1. AUSTEDO XR [Suspect]
     Active Substance: DEUTETRABENAZINE
     Indication: Huntington^s disease
     Route: 048

REACTIONS (2)
  - Product dose omission issue [Unknown]
  - Condition aggravated [Unknown]
